FAERS Safety Report 10597322 (Version 1)
Quarter: 2014Q4

REPORT INFORMATION
  Report Type: Spontaneous
  Country: CA (occurrence: CA)
  Receive Date: 20141121
  Receipt Date: 20141121
  Transmission Date: 20150529
  Serious: Yes (Life-Threatening)
  Sender: FDA-Public Use
  Company Number: CA-AMGEN-CANSP2014090532

PATIENT
  Age: 84 Year
  Sex: Female
  Weight: 47 kg

DRUGS (16)
  1. METFORMIN [Concomitant]
     Active Substance: METFORMIN HYDROCHLORIDE
  2. CYCLOCORT [Concomitant]
     Active Substance: AMCINONIDE
  3. RAMIPRIL. [Concomitant]
     Active Substance: RAMIPRIL
  4. CALCIUM [Concomitant]
     Active Substance: CALCIUM
  5. DESONIDE. [Concomitant]
     Active Substance: DESONIDE
  6. DEXILANT [Concomitant]
     Active Substance: DEXLANSOPRAZOLE
  7. ASA [Concomitant]
     Active Substance: ASPIRIN
  8. EZETROL [Concomitant]
     Active Substance: EZETIMIBE
  9. DOMPERIDONE [Concomitant]
     Active Substance: DOMPERIDONE
  10. D-TABS [Concomitant]
     Active Substance: CHOLECALCIFEROL
  11. RETIN-A [Concomitant]
     Active Substance: TRETINOIN
  12. ATIVAN [Concomitant]
     Active Substance: LORAZEPAM
  13. CRESTOR [Concomitant]
     Active Substance: ROSUVASTATIN CALCIUM
  14. NORFLEX [Concomitant]
     Active Substance: ORPHENADRINE CITRATE
  15. PROLIA [Suspect]
     Active Substance: DENOSUMAB
     Indication: PRODUCT USED FOR UNKNOWN INDICATION
     Dosage: 60 MG, Q6MO
     Route: 058
  16. RATIO-EMTEC [Concomitant]

REACTIONS (1)
  - Hypocalcaemia [Unknown]
